FAERS Safety Report 5448917-3 (Version None)
Quarter: 2007Q3

REPORT INFORMATION
  Report Type: 
  Country: None (occurrence: None)
  Receive Date: 20070911
  Receipt Date: 20070911
  Transmission Date: 20080115
  Serious: Yes (Hospitalization)
  Sender: FDA-Public Use
  Company Number: A0680025A

PATIENT
  Age: 53 Year
  Sex: Male

DRUGS (2)
  1. NICORETTE [Suspect]
     Indication: SMOKING CESSATION THERAPY
     Route: 002
  2. ALLEGRA [Concomitant]

REACTIONS (5)
  - ALLERGIC SINUSITIS [None]
  - CEREBRAL HAEMORRHAGE [None]
  - FEELING ABNORMAL [None]
  - HEADACHE [None]
  - INTENTIONAL DRUG MISUSE [None]
